FAERS Safety Report 11148187 (Version 1)
Quarter: 2015Q2

REPORT INFORMATION
  Report Type: Spontaneous
  Country: None (occurrence: None)
  Receive Date: 20150527
  Receipt Date: 20150527
  Transmission Date: 20150821
  Serious: Yes (Other)
  Sender: FDA-Public Use
  Company Number: KAD201505-001283

PATIENT
  Age: 63 Year
  Sex: Male

DRUGS (6)
  1. MAGNESIUM (ASCORBIC ACID, LEVOGLUTAMIDE, PYRIDOXINE HYDROCHLORIDE, FOLIC ACID, CYANOCOBALAMIN, RIBOFLAVIN, NICOTINAMIDE, TAURINE, CALCIUM PANTOTHENATE, THIAMINE MONONITRATEM, SELENOMETHIONINE, MAGNESIUM CITRATE, POTASSIUM ASPARTATE, CALCIUM PHOSPHATE DIBASIC, CHROMIUM NICOTINATE, LEVOCARNITINE TARTRATE) [Concomitant]
     Active Substance: MAGNESIUM
  2. RIBAVIRIN (RIBAVIRIN) [Suspect]
     Active Substance: RIBAVIRIN
     Indication: HEPATITIS C
     Dosage: 800 MG 2 IN 1 D (1600 MG)
     Route: 048
     Dates: start: 20150502
  3. ENDONE (OXYCODONE HYDROCHLORIDE) (OXYCODONE HYDROCHLORIDE) [Concomitant]
  4. ABT-450/RITONAVIR/ABT-267 (OMBITASVIR, PARITAPREVIR, RITONAVIR) [Suspect]
     Active Substance: OMBITASVIR\PARITAPREVIR\RITONAVIR
     Indication: HEPATITIS C
     Route: 048
     Dates: start: 20150318
  5. ABT-333 (DASABUVIR) [Suspect]
     Active Substance: DASABUVIR
     Indication: HEPATITIS C
     Route: 048
  6. TACROLIMUS (TACROLIMUS) (TACROLIMUS) [Concomitant]

REACTIONS (14)
  - Arthralgia [None]
  - Hyponatraemia [None]
  - Osteoarthritis [None]
  - Chest pain [None]
  - Cerebral small vessel ischaemic disease [None]
  - Migraine [None]
  - Pain in extremity [None]
  - Confusional state [None]
  - Oral herpes [None]
  - Gout [None]
  - Haemolysis [None]
  - Refusal of treatment by patient [None]
  - Anaemia [None]
  - Exostosis [None]

NARRATIVE: CASE EVENT DATE: 20150506
